FAERS Safety Report 23817973 (Version 2)
Quarter: 2024Q2

REPORT INFORMATION
  Report Type: Spontaneous
  Country: US (occurrence: US)
  Receive Date: 20240506
  Receipt Date: 20240515
  Transmission Date: 20240717
  Serious: Yes (Hospitalization)
  Sender: FDA-Public Use
  Company Number: US-BoehringerIngelheim-2024-BI-024843

PATIENT

DRUGS (2)
  1. MIRAPEX ER [Suspect]
     Active Substance: PRAMIPEXOLE DIHYDROCHLORIDE
     Indication: Restless legs syndrome
     Dosage: EXTENDED RELEASE TABLETS
     Dates: start: 202401, end: 2024
  2. VYNDAMAX [Concomitant]
     Active Substance: TAFAMIDIS
     Indication: Product used for unknown indication

REACTIONS (9)
  - Oedema [Recovered/Resolved]
  - Fluid retention [Recovered/Resolved]
  - Off label use [Unknown]
  - Fall [Unknown]
  - Restless legs syndrome [Recovered/Resolved]
  - Back pain [Not Recovered/Not Resolved]
  - Neuropathy peripheral [Unknown]
  - Tremor [Unknown]
  - Insomnia [Unknown]

NARRATIVE: CASE EVENT DATE: 20240101
